FAERS Safety Report 25995793 (Version 2)
Quarter: 2025Q4

REPORT INFORMATION
  Report Type: Spontaneous
  Country: CN (occurrence: CN)
  Receive Date: 20251104
  Receipt Date: 20251110
  Transmission Date: 20260117
  Serious: Yes (Other)
  Sender: PFIZER
  Company Number: CN-PFIZER INC-PV202500127465

PATIENT
  Age: 57 Year
  Sex: Female

DRUGS (4)
  1. EXEMESTANE [Suspect]
     Active Substance: EXEMESTANE
     Indication: Hormone receptor positive HER2 negative breast cancer
     Dosage: 25 MG, 1X/DAY, THIRD LINE THERAPY
     Route: 048
     Dates: start: 202204
  2. EXEMESTANE [Suspect]
     Active Substance: EXEMESTANE
     Indication: BRCA2 gene mutation
  3. FLUZOPARIB [Suspect]
     Active Substance: FLUZOPARIB
     Indication: Hormone receptor positive HER2 negative breast cancer
     Dosage: 300 MG, 2X/DAY, THIRD LINE THERAPY
     Route: 048
  4. FLUZOPARIB [Suspect]
     Active Substance: FLUZOPARIB
     Indication: BRCA2 gene mutation

REACTIONS (3)
  - Anaemia [Unknown]
  - Nausea [Unknown]
  - Rash [Unknown]
